FAERS Safety Report 23609932 (Version 1)
Quarter: 2024Q1

REPORT INFORMATION
  Report Type: Report from Study
  Country: BR (occurrence: BR)
  Receive Date: 20240308
  Receipt Date: 20240308
  Transmission Date: 20240410
  Serious: Yes (Other)
  Sender: FDA-Public Use
  Company Number: BR-JNJFOC-20240304614

PATIENT
  Age: 65 Year
  Sex: Female
  Weight: 70 kg

DRUGS (3)
  1. INFLIXIMAB [Suspect]
     Active Substance: INFLIXIMAB
     Indication: Crohn^s disease
     Dosage: FREQUENCY ALSO REPORTED AS 2 MONTHS
     Route: 041
     Dates: start: 20150608
  2. INFLIXIMAB [Suspect]
     Active Substance: INFLIXIMAB
     Dosage: FREQUENCY ALSO REPORTED AS 28 DAYS
     Route: 041
  3. INFLIXIMAB [Suspect]
     Active Substance: INFLIXIMAB
     Indication: Crohn^s disease
     Route: 065
     Dates: start: 202303

REACTIONS (2)
  - Sepsis [Unknown]
  - Off label use [Unknown]
